FAERS Safety Report 20345904 (Version 2)
Quarter: 2022Q1

REPORT INFORMATION
  Report Type: Report from Study
  Country: US (occurrence: US)
  Receive Date: 20220118
  Receipt Date: 20220315
  Transmission Date: 20220423
  Serious: Yes (Hospitalization, Other)
  Sender: FDA-Public Use
  Company Number: US-TAKEDA-2022TUS002723

PATIENT
  Sex: Female

DRUGS (1)
  1. PONATINIB [Suspect]
     Active Substance: PONATINIB
     Indication: Acute lymphocytic leukaemia (in remission)
     Dosage: 15 MILLIGRAM, QD
     Route: 065
     Dates: start: 202108

REACTIONS (4)
  - Acute lymphocytic leukaemia [Unknown]
  - Impaired quality of life [Unknown]
  - Laboratory test abnormal [Unknown]
  - Fatigue [Unknown]
